FAERS Safety Report 17439574 (Version 1)
Quarter: 2020Q1

REPORT INFORMATION
  Report Type: Spontaneous
  Country: CH (occurrence: CH)
  Receive Date: 20200220
  Receipt Date: 20200220
  Transmission Date: 20200409
  Serious: Yes (Hospitalization)
  Sender: FDA-Public Use
  Company Number: CH-SA-2020SA038476

PATIENT
  Age: 49 Year
  Sex: Female

DRUGS (7)
  1. PARACETAMOL/TRAMADOL HYDROCHLORIDE [Suspect]
     Active Substance: ACETAMINOPHEN\TRAMADOL HYDROCHLORIDE
     Indication: PAIN
     Dosage: UNK
     Route: 048
  2. MABTHERA [Suspect]
     Active Substance: RITUXIMAB
     Indication: POLYARTHRITIS
     Dosage: 2X 500 MG EVERY 5 MONTH
     Route: 042
     Dates: start: 201803
  3. ARAVA [Suspect]
     Active Substance: LEFLUNOMIDE
     Indication: POLYARTHRITIS
     Dosage: 10 MG, QD
     Route: 048
     Dates: start: 201802, end: 20200120
  4. PLAQUENIL [Suspect]
     Active Substance: HYDROXYCHLOROQUINE SULFATE
     Indication: POLYARTHRITIS
     Dosage: 200 MG, QD
     Route: 048
     Dates: start: 201802
  5. CIMIFEMIN [Suspect]
     Active Substance: BLACK COHOSH
     Indication: MENOPAUSAL SYMPTOMS
     Dosage: 13 MG, QD
     Route: 048
  6. PANTOZOL [Suspect]
     Active Substance: PANTOPRAZOLE SODIUM
     Dosage: AS NECESSARY
     Route: 048
  7. PREDNISOLON [PREDNISOLONE] [Concomitant]
     Active Substance: PREDNISOLONE
     Indication: POLYARTHRITIS
     Dosage: UNK
     Route: 048
     Dates: start: 201802

REACTIONS (1)
  - Hepatic enzyme increased [Not Recovered/Not Resolved]

NARRATIVE: CASE EVENT DATE: 20200122
